FAERS Safety Report 11779816 (Version 3)
Quarter: 2016Q1

REPORT INFORMATION
  Report Type: Spontaneous
  Country: KR (occurrence: KR)
  Receive Date: 20151125
  Receipt Date: 20160202
  Transmission Date: 20160525
  Serious: Yes (Other)
  Sender: FDA-Public Use
  Company Number: KR-WATSON-2015-25974

PATIENT
  Age: 48 Year
  Sex: Male

DRUGS (26)
  1. MOXIFLOXACIN. [Suspect]
     Active Substance: MOXIFLOXACIN
     Indication: PNEUMONIA BACTERIAL
     Dosage: UNK
     Route: 042
  2. MEROPENEM. [Concomitant]
     Active Substance: MEROPENEM
     Indication: RHODOCOCCUS INFECTION
     Dosage: 6 G, DAILY
     Route: 065
  3. LINEZOLID (UNKNOWN) [Suspect]
     Active Substance: LINEZOLID
     Indication: RHODOCOCCUS INFECTION
     Dosage: 1200 MG, DAILY
     Route: 065
  4. DOXYCYCLIN                         /00055701/ [Concomitant]
     Active Substance: DOXYCYCLINE
     Indication: RHODOCOCCUS INFECTION
     Dosage: 400 MG, DAILY
     Route: 065
  5. CICLOSPORIN [Concomitant]
     Active Substance: CYCLOSPORINE
     Indication: SYSTEMIC LUPUS ERYTHEMATOSUS
     Dosage: 100 MG, BID
     Route: 065
  6. SITAGLIPTIN [Concomitant]
     Active Substance: SITAGLIPTIN
     Indication: DIABETES MELLITUS
     Dosage: UNK
     Route: 065
  7. CLINDAMYCIN (UNKNOWN) [Suspect]
     Active Substance: CLINDAMYCIN\CLINDAMYCIN PHOSPHATE
     Indication: PNEUMONIA BACTERIAL
     Dosage: UNK
     Route: 042
  8. AMIKACIN [Suspect]
     Active Substance: AMIKACIN
     Dosage: 25 MG, DAILY
     Route: 037
  9. RIFAMPICIN [Concomitant]
     Active Substance: RIFAMPIN
     Indication: PNEUMONIA BACTERIAL
     Dosage: 600 MG, BID
     Route: 065
  10. PREDNISOLONE. [Concomitant]
     Active Substance: PREDNISOLONE
     Indication: SYSTEMIC LUPUS ERYTHEMATOSUS
     Dosage: 25 MG, DAILY
     Route: 065
  11. CEFTRIAXONE (UNKNOWN) [Suspect]
     Active Substance: CEFTRIAXONE
     Indication: RHODOCOCCUS INFECTION
     Dosage: 4 G, DAILY
     Route: 065
  12. DOXYCYCLIN                         /00055701/ [Concomitant]
     Active Substance: DOXYCYCLINE
     Dosage: 100 MG, BID
     Route: 048
  13. IMIPENEM [Concomitant]
     Active Substance: IMIPENEM
     Indication: MENINGITIS
     Dosage: 3 G, DAILY
  14. LEVOFLOXACIN (UNKNOWN) [Suspect]
     Active Substance: LEVOFLOXACIN
     Indication: RHODOCOCCUS INFECTION
     Dosage: 750 MG, DAILY
     Route: 048
  15. AMIKACIN [Suspect]
     Active Substance: AMIKACIN
     Indication: RHODOCOCCUS INFECTION
     Dosage: 15 MG/KG, DAILY
     Route: 065
  16. RIFAMPICIN [Concomitant]
     Active Substance: RIFAMPIN
     Indication: RHODOCOCCUS INFECTION
     Dosage: 600 MG, DAILY
     Route: 065
  17. CEFTRIAXONE (UNKNOWN) [Suspect]
     Active Substance: CEFTRIAXONE
     Indication: PNEUMONIA BACTERIAL
     Dosage: 2 G, DAILY
     Route: 065
  18. VANCOMYCIN (UNKNOWN) [Suspect]
     Active Substance: VANCOMYCIN
     Dosage: 25 MG, DAILY
     Route: 039
  19. VANCOMYCIN (UNKNOWN) [Suspect]
     Active Substance: VANCOMYCIN
     Indication: RHODOCOCCUS INFECTION
     Dosage: 2 G, DAILY
     Route: 065
  20. LINEZOLID (UNKNOWN) [Suspect]
     Active Substance: LINEZOLID
     Dosage: 1200 MG, DAILY
     Route: 048
  21. TRIMETHOPRIM-SULFAMETHOXAZOLE (UNKNOWN) [Suspect]
     Active Substance: SULFAMETHOXAZOLE\TRIMETHOPRIM
     Indication: RHODOCOCCUS INFECTION
     Dosage: UNK
     Route: 065
  22. VANCOMYCIN (UNKNOWN) [Suspect]
     Active Substance: VANCOMYCIN
     Dosage: 2 G, UNK
     Route: 042
  23. ROXITHROMYCIN (UNKNOWN) [Suspect]
     Active Substance: ROXITHROMYCIN
     Indication: PNEUMONIA BACTERIAL
     Dosage: 150 MG, BID
     Route: 065
  24. AZITHROMYCIN ANHYDROUS. [Concomitant]
     Active Substance: AZITHROMYCIN ANHYDROUS
     Indication: MENINGITIS
     Dosage: UNK
     Route: 065
  25. METFORMIN [Concomitant]
     Active Substance: METFORMIN HYDROCHLORIDE
     Indication: DIABETES MELLITUS
     Dosage: UNK
     Route: 065
  26. TEICOPLANIN [Concomitant]
     Active Substance: TEICOPLANIN
     Indication: MENINGITIS
     Dosage: 400 MG, Q24H
     Route: 065

REACTIONS (8)
  - Therapeutic response changed [Unknown]
  - Adverse drug reaction [Unknown]
  - Toxicity to various agents [Unknown]
  - Disease recurrence [Unknown]
  - Neutropenia [Recovering/Resolving]
  - Brain abscess [Recovering/Resolving]
  - Malabsorption from administration site [Unknown]
  - Hypoacusis [Unknown]
